FAERS Safety Report 12418337 (Version 2)
Quarter: 2016Q3

REPORT INFORMATION
  Report Type: Spontaneous
  Country: US (occurrence: US)
  Receive Date: 20160531
  Receipt Date: 20160712
  Transmission Date: 20161109
  Serious: No
  Sender: FDA-Public Use
  Company Number: US-PFIZER INC-2016278310

PATIENT
  Sex: Female

DRUGS (1)
  1. XELJANZ [Suspect]
     Active Substance: TOFACITINIB CITRATE
     Indication: RHEUMATOID ARTHRITIS
     Dosage: 5 MG BID

REACTIONS (6)
  - Arthralgia [Unknown]
  - Back pain [Unknown]
  - Gastric disorder [Unknown]
  - Herpes zoster [Unknown]
  - Pain in extremity [Unknown]
  - Neck pain [Unknown]
